FAERS Safety Report 5204231-2 (Version None)
Quarter: 2007Q1

REPORT INFORMATION
  Report Type: 
  Country: None (occurrence: None)
  Receive Date: 20070110
  Receipt Date: 20060118
  Transmission Date: 20070707
  Serious: Yes (Other)
  Sender: FDA-Public Use
  Company Number: US-BRISTOL-MYERS SQUIBB COMPANY-13250576

PATIENT
  Sex: Male
  Weight: 68 kg

DRUGS (6)
  1. ABILIFY [Suspect]
     Indication: ABNORMAL BEHAVIOUR
     Route: 048
     Dates: start: 20040730
  2. LAMICTAL [Concomitant]
  3. TOPAMAX [Concomitant]
  4. CLOZAPINE [Concomitant]
  5. SYNTHROID [Concomitant]
  6. VITAMINS NOS [Concomitant]

REACTIONS (1)
  - CONVULSION [None]
